FAERS Safety Report 4483464-7 (Version None)
Quarter: 2004Q4

REPORT INFORMATION
  Report Type: 
  Country: None (occurrence: None)
  Receive Date: 20041020
  Receipt Date: 20041005
  Transmission Date: 20050328
  Serious: Yes (Other)
  Sender: FDA-Public Use
  Company Number: SUS1-2004-00635

PATIENT
  Age: 70 Year
  Sex: Male
  Weight: 76.2 kg

DRUGS (10)
  1. AGRYLIN [Suspect]
     Indication: POLYCYTHAEMIA
     Dosage: 0.5 MG, 3X/DAY: TID
     Dates: start: 20040919
  2. HYDREA [Concomitant]
  3. WARFARIN SODIUM [Concomitant]
  4. ASPIRIN [Concomitant]
  5. AMLODIPINE BESYLATE [Concomitant]
  6. TOPROL-XL [Concomitant]
  7. FUROSEMIDE [Concomitant]
  8. BENICAR [Concomitant]
  9. ACIPHEX [Concomitant]
  10. ADVAIR (FLUTICASONE PROPIONATE, SALMETEROL XINAFOATE) [Concomitant]

REACTIONS (5)
  - BLOOD POTASSIUM INCREASED [None]
  - INFLUENZA [None]
  - PAIN [None]
  - PLATELET COUNT INCREASED [None]
  - WHITE BLOOD CELL COUNT INCREASED [None]
